FAERS Safety Report 8361371-7 (Version None)
Quarter: 2012Q2

REPORT INFORMATION
  Report Type: 
  Country: None (occurrence: None)
  Receive Date: 20120514
  Receipt Date: 20120416
  Transmission Date: 20120825
  Serious: Yes (Hospitalization)
  Sender: FDA-Public Use
  Company Number: ES-025417

PATIENT
  Age: 79 Year
  Sex: Male

DRUGS (5)
  1. OFATUMMAB (OFATUMMAB) (INJECTION) [Suspect]
     Indication: CHRONIC LYMPHOCYTIC LEUKAEMIA
     Dosage: INTRAVENOUS (NOT OTHERWISE SPECIFIED)
     Route: 042
     Dates: start: 20100430
  2. AZITHROMYCIN [Concomitant]
  3. CEFTAZIDIME [Concomitant]
  4. CEFDITOREN PIVOXIL [Concomitant]
  5. CHLORAMBUCIL (CHLORAMBUCIL) (TABLET) [Suspect]
     Indication: CHRONIC LYMPHOCYTIC LEUKAEMIA
     Dosage: (10 MG/M2) ORAL
     Route: 048
     Dates: start: 20100430

REACTIONS (1)
  - LOBAR PNEUMONIA [None]
